FAERS Safety Report 21715176 (Version 1)
Quarter: 2022Q4

REPORT INFORMATION
  Report Type: Report from Study
  Country: US (occurrence: US)
  Receive Date: 20221212
  Receipt Date: 20221212
  Transmission Date: 20230113
  Serious: No
  Sender: FDA-Public Use
  Company Number: US-ABBVIE-4233074

PATIENT
  Sex: Female

DRUGS (1)
  1. VENCLEXTA [Suspect]
     Active Substance: VENETOCLAX
     Indication: Leukaemia
     Dosage: STRENGTH: 100 MG?TAKING VENCLEXTA WITH FOOD AND A FULL GLASS OF WATER
     Route: 048

REACTIONS (1)
  - Diarrhoea [Unknown]
